FAERS Safety Report 8094672-0 (Version None)
Quarter: 2012Q1

REPORT INFORMATION
  Report Type: 
  Country: None (occurrence: None)
  Receive Date: 20120129
  Receipt Date: 20111217
  Transmission Date: 20120608
  Serious: No
  Sender: FDA-Public Use
  Company Number: US-ABBOTT-11P-163-0885240-00

PATIENT
  Age: 43 Year
  Sex: Female
  Weight: 46.762 kg

DRUGS (2)
  1. ACETAMINOPHEN [Concomitant]
     Indication: PRODUCT USED FOR UNKNOWN INDICATION
  2. HUMIRA [Suspect]
     Indication: CROHN'S DISEASE
     Dates: start: 20060101, end: 20111126

REACTIONS (12)
  - CROHN'S DISEASE [None]
  - PROCTALGIA [None]
  - SPUTUM DISCOLOURED [None]
  - OROPHARYNGEAL PAIN [None]
  - ABDOMINAL PAIN [None]
  - ANTINUCLEAR ANTIBODY POSITIVE [None]
  - PAIN [None]
  - FACIAL PAIN [None]
  - HAEMATOCHEZIA [None]
  - FREQUENT BOWEL MOVEMENTS [None]
  - SINUSITIS [None]
  - MALAISE [None]
